FAERS Safety Report 5270385-5 (Version None)
Quarter: 2007Q1

REPORT INFORMATION
  Report Type: 
  Country: None (occurrence: None)
  Receive Date: 20070320
  Receipt Date: 20070313
  Transmission Date: 20070707
  Serious: Yes (Other)
  Sender: FDA-Public Use
  Company Number: FR-BOEHRINGER INGELHEIM PHARMACEUTICALS, INC.-2007-FF-00246PF

PATIENT
  Age: 70 Year
  Sex: Female

DRUGS (4)
  1. SPIRIVA [Suspect]
     Indication: CHRONIC OBSTRUCTIVE PULMONARY DISEASE
     Route: 055
     Dates: start: 20060901, end: 20070130
  2. OXYGEN [Concomitant]
     Indication: DYSPNOEA
     Dosage: 1 LITER
  3. BETA-2 MIMETIC AGENT [Concomitant]
  4. CORTICOIDS [Concomitant]

REACTIONS (1)
  - FACE OEDEMA [None]
